FAERS Safety Report 23669349 (Version 1)
Quarter: 2024Q1

REPORT INFORMATION
  Report Type: Spontaneous
  Country: US (occurrence: None)
  Receive Date: 20240324
  Receipt Date: 20240324
  Transmission Date: 20240410
  Serious: Yes (Other)
  Sender: FDA-Public Use
  Company Number: None

PATIENT
  Age: 11 Year
  Sex: Male
  Weight: 48.15 kg

DRUGS (1)
  1. XOFLUZA [Suspect]
     Active Substance: BALOXAVIR MARBOXIL
     Indication: Influenza
     Dosage: OTHER FREQUENCY : SINGLE DOSE;?
     Route: 048
     Dates: start: 20240313

REACTIONS (2)
  - Hallucination [None]
  - Confusional state [None]

NARRATIVE: CASE EVENT DATE: 20240313
